FAERS Safety Report 17536079 (Version 1)
Quarter: 2020Q1

REPORT INFORMATION
  Report Type: Spontaneous
  Country: CA (occurrence: CA)
  Receive Date: 20200313
  Receipt Date: 20200313
  Transmission Date: 20200409
  Serious: Yes (Other)
  Sender: FDA-Public Use
  Company Number: CA-TEVA-2020-CA-1201163

PATIENT
  Age: 60 Year
  Sex: Female

DRUGS (11)
  1. ACETAMINOPHEN. [Concomitant]
     Active Substance: ACETAMINOPHEN
  2. VITAMIN D NOS [Concomitant]
     Active Substance: VITAMIN D NOS
  3. METHOTREXATE. [Suspect]
     Active Substance: METHOTREXATE
     Indication: PRODUCT USED FOR UNKNOWN INDICATION
     Route: 058
  4. NEXIUM [Concomitant]
     Active Substance: ESOMEPRAZOLE MAGNESIUM
  5. PREDNISONE. [Concomitant]
     Active Substance: PREDNISONE
  6. PROGESTERONE. [Concomitant]
     Active Substance: PROGESTERONE
  7. ESTRACE [Concomitant]
     Active Substance: ESTRADIOL
  8. AMLODIPINE [Concomitant]
     Active Substance: AMLODIPINE BESYLATE
  9. HYALURONATE SODIUM [Concomitant]
     Active Substance: HYALURONATE SODIUM
  10. XELJANZ [Concomitant]
     Active Substance: TOFACITINIB CITRATE
  11. ADVIL [IBUPROFEN] [Concomitant]
     Active Substance: IBUPROFEN

REACTIONS (3)
  - Self esteem decreased [Recovered/Resolved]
  - Skin odour abnormal [Recovered/Resolved]
  - Social problem [Recovered/Resolved]
